FAERS Safety Report 24054991 (Version 2)
Quarter: 2024Q3

REPORT INFORMATION
  Report Type: Spontaneous
  Country: GB (occurrence: GB)
  Receive Date: 20240705
  Receipt Date: 20240717
  Transmission Date: 20241017
  Serious: Yes (Death, Life-Threatening, Hospitalization, Other)
  Sender: SANDOZ
  Company Number: GB-TEVA-2023-GB-2901265

PATIENT
  Age: 5 Decade
  Sex: Female

DRUGS (11)
  1. AMPHOTERICIN B [Suspect]
     Active Substance: AMPHOTERICIN B
     Indication: Mucormycosis
     Dosage: DOSAGE TEXT: NUMBER OF SEPARATE DOSES
     Route: 065
  2. AMPHOTERICIN B [Suspect]
     Active Substance: AMPHOTERICIN B
     Dosage: DOSAGE TEXT: NUMBER OF SEPARATE DOSES
     Route: 065
  3. AMPHOTERICIN B [Suspect]
     Active Substance: AMPHOTERICIN B
     Indication: Disseminated mucormycosis
     Dosage: UNK
     Route: 065
  4. FLUCONAZOLE [Suspect]
     Active Substance: FLUCONAZOLE
     Indication: Disseminated mucormycosis
     Dosage: DOSAGE TEXT: NUMBER OF SEPARATE DOSES
     Route: 065
  5. FLUCONAZOLE [Suspect]
     Active Substance: FLUCONAZOLE
     Dosage: DOSAGE TEXT: NUMBER OF SEPARATE DOSES
     Route: 065
  6. FLUCONAZOLE [Suspect]
     Active Substance: FLUCONAZOLE
     Indication: Mucormycosis
     Dosage: UNK
     Route: 065
  7. METHOTREXATE [Suspect]
     Active Substance: METHOTREXATE
     Indication: Rheumatoid arthritis
     Dosage: DOSAGE TEXT: NUMBER OF SEPARATE DOSES:
     Route: 065
  8. METHOTREXATE [Suspect]
     Active Substance: METHOTREXATE
     Indication: Rheumatic disorder
     Dosage: UNK
     Route: 065
  9. VORICONAZOLE [Suspect]
     Active Substance: VORICONAZOLE
     Indication: Mucormycosis
     Dosage: DOSAGE TEXT: NUMBER OF SEPARATE DOSES
     Route: 065
  10. VORICONAZOLE [Suspect]
     Active Substance: VORICONAZOLE
     Dosage: DOSAGE TEXT: NUMBER OF SEPARATE DOSES
     Route: 065
  11. VORICONAZOLE [Suspect]
     Active Substance: VORICONAZOLE
     Indication: Disseminated mucormycosis
     Dosage: UNK
     Route: 065

REACTIONS (8)
  - Disseminated mucormycosis [Fatal]
  - Condition aggravated [Fatal]
  - Mucormycosis [Not Recovered/Not Resolved]
  - Hypertension [Not Recovered/Not Resolved]
  - Shock [Unknown]
  - Neutropenic sepsis [Unknown]
  - Multiple organ dysfunction syndrome [Unknown]
  - Drug ineffective [Not Recovered/Not Resolved]
